FAERS Safety Report 7764754-9 (Version None)
Quarter: 2011Q3

REPORT INFORMATION
  Report Type: 
  Country: None (occurrence: None)
  Receive Date: 20110921
  Receipt Date: 20110921
  Transmission Date: 20111222
  Serious: Yes (Life-Threatening, Hospitalization, Other)
  Sender: FDA-Public Use
  Company Number: None

PATIENT
  Sex: Male
  Weight: 62 kg

DRUGS (1)
  1. ETANERCEPT [Suspect]
     Indication: JUVENILE ARTHRITIS
     Dosage: 15 MG
     Route: 058
     Dates: start: 20070901, end: 20071201

REACTIONS (4)
  - METASTASIS [None]
  - SPINAL DISORDER [None]
  - MENINGITIS [None]
  - EPENDYMOMA MALIGNANT [None]
